FAERS Safety Report 7966275-7 (Version None)
Quarter: 2011Q4

REPORT INFORMATION
  Report Type: 
  Country: None (occurrence: None)
  Receive Date: 20111208
  Receipt Date: 20111205
  Transmission Date: 20120403
  Serious: Yes (Death, Hospitalization, Other)
  Sender: FDA-Public Use
  Company Number: PHEH2005US10673

PATIENT

DRUGS (19)
  1. MITOXANTRONE [Concomitant]
     Indication: CHEMOTHERAPY
     Dosage: 22 MG, UNK
     Route: 042
     Dates: start: 20020515, end: 20021101
  2. ZOCOR [Concomitant]
  3. ZOMETA [Suspect]
     Indication: METASTASES TO BONE
     Dosage: 4 MG, UNK
     Route: 042
     Dates: start: 20020515, end: 20041230
  4. TAXOTERE [Concomitant]
     Indication: CHEMOTHERAPY
     Dosage: 60 MG, QMO
     Route: 042
     Dates: start: 20020822, end: 20050218
  5. PREVACID [Concomitant]
     Indication: GASTROOESOPHAGEAL REFLUX DISEASE
     Route: 048
  6. AMBIEN [Concomitant]
  7. ARIMIDEX [Concomitant]
     Indication: BREAST CANCER
     Dosage: 1 MG, QD
     Route: 048
     Dates: start: 19980601
  8. XELODA [Concomitant]
     Indication: CHEMOTHERAPY
     Dosage: 200 MG, BID X 2 WKS THEN OFF 1 WK
     Route: 048
     Dates: start: 20030625, end: 20030822
  9. CALCIUM [Concomitant]
  10. NEULASTA [Concomitant]
     Indication: ANAEMIA
     Dosage: 6 MG, UNK
     Dates: start: 20021004
  11. NEXIUM [Concomitant]
     Indication: GASTROOESOPHAGEAL REFLUX DISEASE
     Route: 048
  12. POTASSIUM ACETATE [Concomitant]
  13. LEUCOVORIN CALCIUM [Concomitant]
     Indication: CHEMOTHERAPY
     Dosage: 300 MG, UNK
     Route: 042
     Dates: start: 20020515, end: 20021101
  14. ZOFRAN [Concomitant]
     Indication: PROPHYLAXIS
  15. LIPITOR [Concomitant]
     Indication: HYPERCHOLESTEROLAEMIA
     Dosage: UNK, QHS
     Route: 048
  16. AREDIA [Suspect]
     Indication: METASTASES TO BONE
     Dosage: 90 MG, QMO
     Route: 042
     Dates: start: 20010605, end: 20020411
  17. FLUOROURACIL [Concomitant]
     Indication: CHEMOTHERAPY
     Dosage: 650 MG, UNK
     Route: 042
     Dates: start: 20020515, end: 20021101
  18. VALIUM [Concomitant]
     Dosage: UNK, PRN
     Route: 048
  19. VINCRISTINE + ADRIAMYCIN + DEXAMETHASONE [Concomitant]
     Indication: LUNG NEOPLASM MALIGNANT

REACTIONS (46)
  - IMPAIRED HEALING [None]
  - VISION BLURRED [None]
  - ARTHROPATHY [None]
  - CHILLS [None]
  - INTERVERTEBRAL DISC DISORDER [None]
  - INTERVERTEBRAL DISC DEGENERATION [None]
  - PULMONARY HILUM MASS [None]
  - COUGH [None]
  - ASPIRATION PLEURAL CAVITY [None]
  - ANAEMIA [None]
  - SINUSITIS [None]
  - VITREOUS FLOATERS [None]
  - FATIGUE [None]
  - OPTIC NEURITIS [None]
  - BRUXISM [None]
  - NEUROPATHY PERIPHERAL [None]
  - MIGRAINE [None]
  - METASTASES TO CENTRAL NERVOUS SYSTEM [None]
  - WEIGHT DECREASED [None]
  - DIARRHOEA [None]
  - BONE DISORDER [None]
  - WHEEZING [None]
  - BONE FISTULA [None]
  - SPINAL COLUMN STENOSIS [None]
  - DYSPNOEA [None]
  - THYROID NEOPLASM [None]
  - CONFUSIONAL STATE [None]
  - ABDOMINAL DISTENSION [None]
  - ELECTROCARDIOGRAM ABNORMAL [None]
  - RESPIRATORY FAILURE [None]
  - OSTEONECROSIS OF JAW [None]
  - BACK PAIN [None]
  - OEDEMA PERIPHERAL [None]
  - DISORIENTATION [None]
  - GINGIVAL PAIN [None]
  - PLEURAL EFFUSION [None]
  - METASTASES TO LIVER [None]
  - HEADACHE [None]
  - SCIATICA [None]
  - PERONEAL NERVE PALSY [None]
  - LOOSE TOOTH [None]
  - RETINAL HAEMORRHAGE [None]
  - PERIODONTAL DISEASE [None]
  - SMALL CELL LUNG CANCER METASTATIC [None]
  - GINGIVAL ULCERATION [None]
  - BLINDNESS [None]
